FAERS Safety Report 16176486 (Version 1)
Quarter: 2019Q2

REPORT INFORMATION
  Report Type: Spontaneous
  Country: BR (occurrence: BR)
  Receive Date: 20190409
  Receipt Date: 20190409
  Transmission Date: 20190711
  Serious: Yes (Death)
  Sender: FDA-Public Use
  Company Number: BR-CELGENEUS-BRA-20190402356

PATIENT
  Age: 87 Year
  Sex: Female

DRUGS (1)
  1. VIDAZA [Suspect]
     Active Substance: AZACITIDINE
     Indication: MYELODYSPLASTIC SYNDROME
     Dosage: 100 MILLIGRAM
     Route: 058
     Dates: start: 20170104

REACTIONS (3)
  - Full blood count decreased [Fatal]
  - Myelodysplastic syndrome transformation [Fatal]
  - Bacteraemia [Fatal]

NARRATIVE: CASE EVENT DATE: 20190402
